FAERS Safety Report 6718248-X (Version None)
Quarter: 2010Q2

REPORT INFORMATION
  Report Type: 
  Country: None (occurrence: None)
  Receive Date: 20100510
  Receipt Date: 20100503
  Transmission Date: 20101027
  Serious: Yes (Life-Threatening, Hospitalization)
  Sender: FDA-Public Use
  Company Number: DE-TEVA-233774ISR

PATIENT
  Age: 85 Year
  Sex: Female
  Weight: 63 kg

DRUGS (4)
  1. BISOPROLOL [Suspect]
     Indication: HYPERTENSION
     Route: 048
     Dates: start: 20080501
  2. ENALAPRIL MALEATE [Suspect]
     Indication: HYPERTENSION
     Route: 048
     Dates: start: 20050101, end: 20091109
  3. MOLSIDOMINE [Suspect]
     Indication: CORONARY ARTERY DISEASE
     Route: 048
  4. TORASEMIDE [Suspect]
     Indication: RENAL FAILURE CHRONIC
     Route: 048
     Dates: start: 20091109

REACTIONS (1)
  - RENAL FAILURE ACUTE [None]
